FAERS Safety Report 9365646 (Version 1)
Quarter: 2013Q2

REPORT INFORMATION
  Report Type: Spontaneous
  Country: US (occurrence: US)
  Receive Date: 20130625
  Receipt Date: 20130625
  Transmission Date: 20140414
  Serious: No
  Sender: FDA-Public Use
  Company Number: US-009507513-1306USA002733

PATIENT
  Sex: 0

DRUGS (2)
  1. AZASITE [Suspect]
     Dosage: 1 DROP IN EACH TWICE DAILY FOR TWO DAYS
     Route: 047
     Dates: start: 20130602, end: 201306
  2. AZASITE [Suspect]
     Dosage: ONE DROP IN EACH EYE ONCE DAILY
     Route: 047
     Dates: start: 20130604

REACTIONS (4)
  - Drug dose omission [Unknown]
  - Product container issue [Unknown]
  - Product outer packaging issue [Unknown]
  - No adverse event [Unknown]
